FAERS Safety Report 7557710-7 (Version None)
Quarter: 2011Q2

REPORT INFORMATION
  Report Type: 
  Country: None (occurrence: None)
  Receive Date: 20110620
  Receipt Date: 20110610
  Transmission Date: 20111010
  Serious: Yes (Hospitalization)
  Sender: FDA-Public Use
  Company Number: JP-GENZYME-THYM-1001417

PATIENT
  Sex: Female
  Weight: 43 kg

DRUGS (13)
  1. THYMOGLOBULIN [Suspect]
     Dosage: 50 MG, QD
     Route: 042
     Dates: start: 20100320, end: 20100321
  2. METHYLPREDNISOLONE SODIUM SUCCINATE [Concomitant]
     Dosage: UNK
     Dates: start: 20100320, end: 20100325
  3. VALACYCLOVIR HYDROCHLORIDE [Concomitant]
     Indication: PROPHYLAXIS
     Dosage: UNK
     Dates: start: 20100310, end: 20100316
  4. LOXOPROFEN SODIUM [Concomitant]
     Indication: PREMEDICATION
     Dosage: UNK
     Dates: start: 20100310, end: 20100310
  5. LOXOPROFEN SODIUM [Concomitant]
     Dosage: UNK
     Dates: start: 20100320, end: 20100325
  6. METHYLPREDNISOLONE SODIUM SUCCINATE [Concomitant]
     Indication: PREMEDICATION
     Dosage: UNK
     Dates: start: 20100310, end: 20100310
  7. DIPHENHYDRAMINE HYDROCHLORIDE [Concomitant]
     Indication: PREMEDICATION
     Dosage: UNK
     Dates: start: 20100310, end: 20100310
  8. THYMOGLOBULIN [Suspect]
     Indication: APLASTIC ANAEMIA
     Dosage: 2.5 MG, QD
     Route: 042
     Dates: start: 20100310, end: 20100310
  9. THYMOGLOBULIN [Suspect]
     Dosage: 25 MG, QD
     Route: 042
     Dates: start: 20100317, end: 20100317
  10. THYMOGLOBULIN [Suspect]
     Dosage: 100 MG, QD
     Route: 042
     Dates: start: 20100322, end: 20100325
  11. THYMOGLOBULIN [Suspect]
     Dosage: 147.5 MG, QD
     Route: 042
     Dates: start: 20100310, end: 20100310
  12. THYMOGLOBULIN [Suspect]
     Dosage: 50 MG, QD
     Route: 042
     Dates: start: 20100318, end: 20100318
  13. DIPHENHYDRAMINE HYDROCHLORIDE [Concomitant]
     Dosage: UNK
     Dates: start: 20100320, end: 20100325

REACTIONS (5)
  - ELECTROCARDIOGRAM QT PROLONGED [None]
  - BRADYCARDIA [None]
  - PYREXIA [None]
  - WHITE BLOOD CELL COUNT DECREASED [None]
  - LIVER DISORDER [None]
